FAERS Safety Report 5445764-3 (Version None)
Quarter: 2007Q3

REPORT INFORMATION
  Report Type: 
  Country: None (occurrence: None)
  Receive Date: 20070904
  Receipt Date: 20070821
  Transmission Date: 20080115
  Serious: Yes (Other)
  Sender: FDA-Public Use
  Company Number: B0485335A

PATIENT
  Sex: 0

DRUGS (1)
  1. CHLORPROMAZINE HCL [Suspect]
     Indication: SCHIZOPHRENIA
     Dosage: TWICE PER DAY

REACTIONS (2)
  - HYPOGLYCAEMIA [None]
  - MYOCARDIAL INFARCTION [None]
